FAERS Safety Report 12885727 (Version 1)
Quarter: 2016Q4

REPORT INFORMATION
  Report Type: Spontaneous
  Country: CH (occurrence: CH)
  Receive Date: 20161026
  Receipt Date: 20161026
  Transmission Date: 20170207
  Serious: Yes (Hospitalization, Other)
  Sender: FDA-Public Use
  Company Number: CH-ASTRAZENECA-2016SF09695

PATIENT
  Age: 33217 Day
  Sex: Male
  Weight: 69 kg

DRUGS (5)
  1. CALCIMAGON D3 [Concomitant]
     Active Substance: CALCIUM\CHOLECALCIFEROL
     Route: 048
  2. CLEXANE [Concomitant]
     Active Substance: ENOXAPARIN SODIUM
     Route: 058
  3. TORASEMIDE [Concomitant]
     Active Substance: TORSEMIDE
     Route: 048
  4. SEROQUEL XR [Suspect]
     Active Substance: QUETIAPINE FUMARATE
     Dosage: 400.0MG ONCE/SINGLE ADMINISTRATION
     Route: 048
     Dates: start: 20160930, end: 20160930
  5. VANCOCIN [Concomitant]
     Active Substance: VANCOMYCIN HYDROCHLORIDE

REACTIONS (6)
  - Apnoea [Unknown]
  - Oxygen saturation decreased [Recovered/Resolved]
  - Somnolence [Recovered/Resolved]
  - Bradycardia [Recovered/Resolved]
  - Accidental overdose [Recovered/Resolved]
  - Dysarthria [Recovered/Resolved]

NARRATIVE: CASE EVENT DATE: 20160930
